FAERS Safety Report 7557462-0 (Version None)
Quarter: 2011Q2

REPORT INFORMATION
  Report Type: 
  Country: None (occurrence: None)
  Receive Date: 20110620
  Receipt Date: 20110607
  Transmission Date: 20111010
  Serious: Yes (Hospitalization)
  Sender: FDA-Public Use
  Company Number: US-ROCHE-783120

PATIENT
  Sex: Female

DRUGS (8)
  1. INDERAL [Suspect]
     Route: 065
  2. HYDROCHLOROTHIAZIDE [Suspect]
     Route: 065
  3. CARBOPLATIN [Suspect]
     Dosage: AUC 6 IP ON DAY1
     Route: 033
     Dates: start: 20100921
  4. HYDROCODONE [Suspect]
     Route: 065
  5. BEVACIZUMAB [Suspect]
     Dosage: PHASE A, GIVEN OVER 30-90 MINUTES ON DAY 1, BEGINING WITH  CYCLE 2.
     Route: 042
     Dates: start: 20100921
  6. PACLITAXEL [Suspect]
     Dosage: 80 MG/M2 OVER 1 HOUR ON DAYS 1, 8 AND 15.
     Route: 042
     Dates: start: 20100921
  7. DOCUSATE [Suspect]
     Route: 065
  8. ATARAX [Suspect]
     Route: 065

REACTIONS (14)
  - DEHYDRATION [None]
  - VOMITING [None]
  - FATIGUE [None]
  - SYNCOPE [None]
  - SMALL INTESTINAL OBSTRUCTION [None]
  - ABDOMINAL DISTENSION [None]
  - ENTERITIS [None]
  - DECREASED APPETITE [None]
  - DIARRHOEA [None]
  - ABDOMINAL PAIN [None]
  - CONSTIPATION [None]
  - MUSCULAR WEAKNESS [None]
  - NAUSEA [None]
  - WHITE BLOOD CELL COUNT DECREASED [None]
